FAERS Safety Report 25751295 (Version 1)
Quarter: 2025Q3

REPORT INFORMATION
  Report Type: Spontaneous
  Country: EU (occurrence: EU)
  Receive Date: 20250902
  Receipt Date: 20250902
  Transmission Date: 20251020
  Serious: Yes (Hospitalization, Other)
  Sender: MARKSANS PHARMA LIMITED
  Company Number: EU-MARKSANS PHARMA LIMITED-MPL202500080

PATIENT

DRUGS (1)
  1. ACETAMINOPHEN [Suspect]
     Active Substance: ACETAMINOPHEN
     Indication: Analgesic therapy
     Route: 065

REACTIONS (11)
  - Hepatotoxicity [Recovered/Resolved]
  - Pancreatitis [Recovered/Resolved]
  - Hepatic encephalopathy [Unknown]
  - Hepatorenal syndrome [Unknown]
  - Coagulopathy [Unknown]
  - Mental status changes [Recovered/Resolved]
  - Toxicity to various agents [Recovered/Resolved]
  - Abdominal pain [Unknown]
  - Nausea [Unknown]
  - Vomiting [Unknown]
  - Overdose [Unknown]
